FAERS Safety Report 11109124 (Version 1)
Quarter: 2015Q2

REPORT INFORMATION
  Report Type: Spontaneous
  Country: FR (occurrence: FR)
  Receive Date: 20150513
  Receipt Date: 20150513
  Transmission Date: 20150821
  Serious: Yes (Hospitalization)
  Sender: FDA-Public Use
  Company Number: FR-JNJFOC-20150500096

PATIENT
  Age: 43 Year
  Sex: Male

DRUGS (3)
  1. ACTIFED [Suspect]
     Active Substance: PSEUDOEPHEDRINE HYDROCHLORIDE\TRIPROLIDINE HYDROCHLORIDE
     Indication: RHINITIS
     Dosage: ONE BOX FOR A ONE-WEEK TREATMENT
     Route: 048
     Dates: start: 20150115
  2. DOLIRHUME [Suspect]
     Active Substance: ACETAMINOPHEN\PSEUDOEPHEDRINE
     Indication: RHINITIS
     Route: 048
     Dates: start: 20150206, end: 20150409
  3. ACTIFED [Suspect]
     Active Substance: PSEUDOEPHEDRINE HYDROCHLORIDE\TRIPROLIDINE HYDROCHLORIDE
     Indication: RHINITIS
     Dosage: ONE BOX FOR A ONE-WEEK TREATMENT
     Route: 048
     Dates: start: 20150115

REACTIONS (1)
  - Myocardial infarction [Recovered/Resolved]

NARRATIVE: CASE EVENT DATE: 20150224
